FAERS Safety Report 16970905 (Version 3)
Quarter: 2019Q4

REPORT INFORMATION
  Report Type: Spontaneous
  Country: CA (occurrence: CA)
  Receive Date: 20191029
  Receipt Date: 20191113
  Transmission Date: 20200122
  Serious: Yes (Other)
  Sender: FDA-Public Use
  Company Number: CA-CELGENEUS-CAN-20191000985

PATIENT
  Age: 59 Year
  Sex: Female

DRUGS (3)
  1. DANAZOL (CYCLOMEN) [Concomitant]
     Indication: PRODUCT USED FOR UNKNOWN INDICATION
     Route: 065
  2. OTEZLA [Suspect]
     Active Substance: APREMILAST
     Indication: PSORIASIS
     Route: 048
     Dates: start: 201909
  3. OTEZLA [Suspect]
     Active Substance: APREMILAST
     Route: 048
     Dates: start: 20190916, end: 201911

REACTIONS (5)
  - Adverse drug reaction [Not Recovered/Not Resolved]
  - Faeces soft [Not Recovered/Not Resolved]
  - Angina pectoris [Not Recovered/Not Resolved]
  - Nausea [Not Recovered/Not Resolved]
  - Frequent bowel movements [Not Recovered/Not Resolved]

NARRATIVE: CASE EVENT DATE: 201909
